FAERS Safety Report 24327284 (Version 1)
Quarter: 2024Q3

REPORT INFORMATION
  Report Type: Spontaneous
  Country: US (occurrence: US)
  Receive Date: 20240917
  Receipt Date: 20240917
  Transmission Date: 20241017
  Serious: Yes (Other)
  Sender: PFIZER
  Company Number: US-PFIZER INC-PV202400120298

PATIENT
  Age: 64 Year
  Sex: Female

DRUGS (2)
  1. PREMARIN [Suspect]
     Active Substance: ESTROGENS, CONJUGATED
     Indication: Atrophic vulvovaginitis
     Dosage: PRESCRIBED 0.5 GRAMS AND THEN WAS INCREASED TO 1 GRAM TWO TO THREE TIMES A WEEK
     Route: 067
  2. PREMARIN [Suspect]
     Active Substance: ESTROGENS, CONJUGATED
     Dosage: PRESCRIBED 0.5 GRAMS AND THEN WAS INCREASED TO 1 GRAM TWO TO THREE TIMES A WEEK
     Route: 067
     Dates: start: 2019

REACTIONS (3)
  - Ankle fracture [Recovering/Resolving]
  - Drug ineffective [Unknown]
  - Product quality issue [Unknown]

NARRATIVE: CASE EVENT DATE: 20240501
